FAERS Safety Report 8844677 (Version 2)
Quarter: 2013Q1

REPORT INFORMATION
  Report Type: Spontaneous
  Country: US (occurrence: None)
  Receive Date: 20121012
  Receipt Date: 20121219
  Transmission Date: 20140127
  Serious: Yes (Hospitalization, Other)
  Sender: FDA-Public Use
  Company Number: DSA_59178_2012

PATIENT
  Sex: Female

DRUGS (9)
  1. XENAZINE [Suspect]
     Indication: TOURETTE^S DISORDER
     Route: 048
     Dates: start: 201208, end: 201208
  2. NEURONTIN [Concomitant]
  3. KEPPRA [Concomitant]
  4. HYDROCHLOROTHIAZIDE [Concomitant]
  5. PROZAC [Concomitant]
  6. TRIHEXYPHENIDYL [Concomitant]
  7. OXAPROZIN [Concomitant]
  8. METHADONE [Concomitant]
  9. DEPRESSION MEDICATION [Concomitant]

REACTIONS (24)
  - Nausea [None]
  - Vomiting [None]
  - Dysuria [None]
  - Dizziness [None]
  - Headache [None]
  - Seizure like phenomena [None]
  - Chills [None]
  - Pain [None]
  - Discomfort [None]
  - Tachycardia [None]
  - Somnolence [None]
  - Gastric ulcer [None]
  - Gastritis [None]
  - Duodenal ulcer [None]
  - Activities of daily living impaired [None]
  - Tic [None]
  - Condition aggravated [None]
  - Peptic ulcer [None]
  - Blood glucose increased [None]
  - Blood potassium decreased [None]
  - Blood chloride increased [None]
  - Blood creatinine increased [None]
  - Burning sensation [None]
  - Gastric haemorrhage [None]
